FAERS Safety Report 16236867 (Version 2)
Quarter: 2021Q3

REPORT INFORMATION
  Report Type: Spontaneous
  Country: PL (occurrence: PL)
  Receive Date: 20190425
  Receipt Date: 20210728
  Transmission Date: 20211014
  Serious: Yes (Other)
  Sender: FDA-Public Use
  Company Number: PL-GLAXOSMITHKLINE-PL2019GSK070592

PATIENT
  Age: 65 Year
  Sex: Female

DRUGS (8)
  1. METAMIZOL [Suspect]
     Active Substance: METAMIZOLE SODIUM
     Indication: PAIN
     Dosage: 500 MG, UNK, IMMEDIATELY
  2. TRAMADOL. [Suspect]
     Active Substance: TRAMADOL
     Dosage: 37.5 MG, UNK
  3. PARACETAMOL [Suspect]
     Active Substance: ACETAMINOPHEN
     Indication: PAIN
     Dosage: 375 MG, QID
     Route: 065
  4. TRAMADOL. [Suspect]
     Active Substance: TRAMADOL
     Indication: PAIN
     Dosage: 100 MG, BID
  5. DICLOFENAC [Suspect]
     Active Substance: DICLOFENAC
     Indication: PAIN
     Dosage: 75 MG, BID
  6. DICLOFENAC [Suspect]
     Active Substance: DICLOFENAC
     Indication: PAIN
     Dosage: UNK, WE, FOR 12 HOURS
     Route: 061
  7. IBUPROFEN. [Suspect]
     Active Substance: IBUPROFEN
     Indication: PAIN
     Dosage: 400 MG, UNK
  8. METAMIZOL [Suspect]
     Active Substance: METAMIZOLE SODIUM
     Indication: BACK PAIN
     Dosage: 500 MG, TID

REACTIONS (14)
  - Arthropathy [Unknown]
  - Dry mouth [Recovered/Resolved]
  - Intervertebral disc disorder [Unknown]
  - Abdominal pain [Recovering/Resolving]
  - Oedema peripheral [Unknown]
  - Drug ineffective [Unknown]
  - Spinal cord compression [Unknown]
  - Muscle tone disorder [Unknown]
  - Osteoarthritis [Unknown]
  - Back pain [Recovering/Resolving]
  - Bone density decreased [Unknown]
  - Palpitations [Unknown]
  - Dyspepsia [Unknown]
  - Nausea [Recovered/Resolved]
